FAERS Safety Report 5643617-9 (Version None)
Quarter: 2008Q1

REPORT INFORMATION
  Report Type: 
  Country: None (occurrence: None)
  Receive Date: 20080228
  Receipt Date: 20080225
  Transmission Date: 20080703
  Serious: Yes (Death, Hospitalization)
  Sender: FDA-Public Use
  Company Number: ES-SANOFI-SYNTHELABO-F01200800316

PATIENT
  Sex: Male
  Weight: 92 kg

DRUGS (3)
  1. XELODA [Suspect]
     Route: 048
     Dates: start: 20071210, end: 20071224
  2. OXALIPLATIN [Suspect]
     Indication: COLORECTAL CANCER METASTATIC
     Route: 041
     Dates: start: 20071210, end: 20071210
  3. AVASTIN [Suspect]
     Route: 041
     Dates: start: 20071210, end: 20071210

REACTIONS (1)
  - DIARRHOEA [None]
